FAERS Safety Report 14671339 (Version 1)
Quarter: 2018Q1

REPORT INFORMATION
  Report Type: Spontaneous
  Country: FR (occurrence: FR)
  Receive Date: 20180323
  Receipt Date: 20180323
  Transmission Date: 20180509
  Serious: Yes (Other)
  Sender: FDA-Public Use
  Company Number: FR-MERCK KGAA-2044351

PATIENT
  Age: 44 Year
  Sex: Female

DRUGS (3)
  1. L-THYROXINE [Concomitant]
     Active Substance: LEVOTHYROXINE
     Dates: start: 20170910
  2. NOVOTHYROX [Suspect]
     Active Substance: LEVOTHYROXINE SODIUM
     Indication: HYPOTHYROIDISM
     Dates: start: 201701, end: 20170915
  3. L-THYROXINE [Concomitant]
     Active Substance: LEVOTHYROXINE
     Dates: start: 201510

REACTIONS (20)
  - Weight increased [Not Recovered/Not Resolved]
  - Emotional distress [None]
  - Blood thyroid stimulating hormone increased [None]
  - Muscle spasms [Recovering/Resolving]
  - Weight loss poor [None]
  - Pelvic pain [None]
  - Asthenia [None]
  - Loss of personal independence in daily activities [None]
  - Social problem [None]
  - Migraine [None]
  - Poor quality sleep [None]
  - Mood swings [Not Recovered/Not Resolved]
  - Fatigue [None]
  - Arthralgia [Recovering/Resolving]
  - Alopecia [None]
  - Major depression [None]
  - Impatience [None]
  - Irritability [None]
  - Disturbance in attention [None]
  - Malaise [None]

NARRATIVE: CASE EVENT DATE: 201703
